FAERS Safety Report 4572026-9 (Version None)
Quarter: 2005Q1

REPORT INFORMATION
  Report Type: 
  Country: None (occurrence: None)
  Receive Date: 20050203
  Receipt Date: 20050203
  Transmission Date: 20050727
  Serious: Yes (Life-Threatening, Hospitalization)
  Sender: FDA-Public Use
  Company Number: None

PATIENT
  Age: 4 Year
  Sex: Male
  Weight: 13.1 kg

DRUGS (3)
  1. LAMOTRIGINE [Suspect]
     Indication: CONVULSION
     Dosage: 12.5 MG PO BID
     Route: 048
     Dates: start: 20041215
  2. LAMOTRIGINE [Suspect]
     Indication: CONVULSION
     Dosage: 12.5 MG PO BID
     Route: 048
     Dates: start: 20041222
  3. LAMOTRIGINE [Suspect]
     Indication: CONVULSION
     Dosage: 12.5 MG PO BID
     Route: 048
     Dates: start: 20041231

REACTIONS (10)
  - BLISTER [None]
  - CONVULSION [None]
  - DERMATITIS EXFOLIATIVE [None]
  - HYPOTHERMIA [None]
  - LETHARGY [None]
  - PYREXIA [None]
  - RASH GENERALISED [None]
  - RASH PAPULAR [None]
  - REGRESSIVE BEHAVIOUR [None]
  - SEPTIC SHOCK [None]
